FAERS Safety Report 8502857-1 (Version None)
Quarter: 2012Q3

REPORT INFORMATION
  Report Type: 
  Country: None (occurrence: None)
  Receive Date: 20120705
  Receipt Date: 20120705
  Transmission Date: 20120928
  Serious: Yes (Hospitalization)
  Sender: FDA-Public Use
  Company Number: None

PATIENT
  Sex: Male

DRUGS (9)
  1. TRIAMTERENE [Concomitant]
  2. LISINOPRIL [Concomitant]
  3. FLUTICASONE PROPIONATE [Concomitant]
  4. COUMADIN [Concomitant]
  5. FINASTERIDE [Concomitant]
  6. DULERA [Concomitant]
  7. METOPROLOL TARTRATE [Suspect]
     Indication: ATRIAL FIBRILLATION
     Dosage: 25 MG TWICE A DAY PO
     Route: 048
     Dates: start: 20120515, end: 20120601
  8. TERAZOSIN HCL [Concomitant]
  9. OMEPRAZOLE [Concomitant]

REACTIONS (6)
  - CONFUSIONAL STATE [None]
  - INSOMNIA [None]
  - OEDEMA PERIPHERAL [None]
  - DYSPNOEA [None]
  - RESTLESSNESS [None]
  - HALLUCINATION [None]
